FAERS Safety Report 4514069-7 (Version None)
Quarter: 2004Q4

REPORT INFORMATION
  Report Type: 
  Country: None (occurrence: None)
  Receive Date: 20041130
  Receipt Date: 20041119
  Transmission Date: 20050328
  Serious: Yes (Death)
  Sender: FDA-Public Use
  Company Number: JP-GLAXOSMITHKLINE-B0357946A

PATIENT
  Age: 27 Year
  Sex: Male

DRUGS (1)
  1. MODACIN [Suspect]
     Route: 042
     Dates: start: 20020701, end: 20020701

REACTIONS (3)
  - LIVER DISORDER [None]
  - OCULOMUCOCUTANEOUS SYNDROME [None]
  - PANCYTOPENIA [None]
